FAERS Safety Report 7901523-0 (Version None)
Quarter: 2011Q4

REPORT INFORMATION
  Report Type: 
  Country: None (occurrence: None)
  Receive Date: 20111108
  Receipt Date: 20111102
  Transmission Date: 20120403
  Serious: Yes (Other)
  Sender: FDA-Public Use
  Company Number: US-BAYER-201040643NA

PATIENT
  Age: 56 Year
  Sex: Female

DRUGS (3)
  1. BETASERON [Suspect]
     Dosage: 8 MIU, QOD
     Dates: end: 20110801
  2. BETASERON [Suspect]
     Dosage: BETAJECT
     Route: 058
  3. BETASERON [Suspect]
     Indication: MULTIPLE SCLEROSIS
     Dosage: 8 MIU, QOD
     Route: 058
     Dates: start: 20070413

REACTIONS (8)
  - INJECTION SITE PAIN [None]
  - INJECTION SITE ERYTHEMA [None]
  - INJECTION SITE ULCER [None]
  - CATARACT [None]
  - GLUCOSE TOLERANCE IMPAIRED [None]
  - INJECTION SITE INFECTION [None]
  - PULMONARY FIBROSIS [None]
  - INJECTION SITE DISCHARGE [None]
